FAERS Safety Report 4318052-6 (Version None)
Quarter: 2004Q1

REPORT INFORMATION
  Report Type: 
  Country: None (occurrence: None)
  Receive Date: 20040317
  Receipt Date: 20040309
  Transmission Date: 20041129
  Serious: Yes (Death)
  Sender: FDA-Public Use
  Company Number: PHHO2004PY03753

PATIENT

DRUGS (1)
  1. GLEEVEC [Suspect]
     Dates: start: 20031007

REACTIONS (1)
  - BONE MARROW DEPRESSION [None]
